FAERS Safety Report 23477076 (Version 1)
Quarter: 2024Q1

REPORT INFORMATION
  Report Type: Spontaneous
  Country: CO (occurrence: CO)
  Receive Date: 20240204
  Receipt Date: 20240204
  Transmission Date: 20240409
  Serious: No
  Sender: FDA-Public Use
  Company Number: CO-IPSEN Group, Research and Development-2023-15062

PATIENT
  Sex: Male

DRUGS (1)
  1. CABOMETYX [Suspect]
     Active Substance: CABOZANTINIB S-MALATE
     Indication: Renal cancer
     Dosage: 1 TABLET A 1 DAY
     Route: 048

REACTIONS (1)
  - Dermatitis [Unknown]
